FAERS Safety Report 5485669-5 (Version None)
Quarter: 2007Q4

REPORT INFORMATION
  Report Type: 
  Country: None (occurrence: None)
  Receive Date: 20071011
  Receipt Date: 20071011
  Transmission Date: 20080405
  Serious: Yes (Hospitalization)
  Sender: FDA-Public Use
  Company Number: None

PATIENT
  Age: 54 Year
  Sex: Female
  Weight: 84 kg

DRUGS (1)
  1. XELODA [Suspect]
     Indication: BREAST CANCER METASTATIC
     Dosage: 2000 MG  BID  PO
     Route: 048
     Dates: start: 20070913, end: 20070927

REACTIONS (10)
  - ABDOMINAL PAIN [None]
  - DIARRHOEA [None]
  - GASTROINTESTINAL HAEMORRHAGE [None]
  - HYPOTENSION [None]
  - INJURY [None]
  - MUCOUS MEMBRANE DISORDER [None]
  - ORAL DISORDER [None]
  - SEPSIS [None]
  - STOMATITIS [None]
  - THERAPEUTIC AGENT TOXICITY [None]
